FAERS Safety Report 9921100 (Version 2)
Quarter: 2014Q2

REPORT INFORMATION
  Report Type: Spontaneous
  Country: AU (occurrence: AU)
  Receive Date: 20140225
  Receipt Date: 20140403
  Transmission Date: 20141212
  Serious: Yes (Hospitalization)
  Sender: FDA-Public Use
  Company Number: AU-ASTRAZENECA-2014SE11353

PATIENT
  Sex: Female

DRUGS (2)
  1. SYMBICORT TBH [Suspect]
     Indication: CHRONIC OBSTRUCTIVE PULMONARY DISEASE
     Dosage: 400/12 MCG WITH UNKNOWN FREQUENCY
     Route: 055
  2. SYMBICORT TBH [Suspect]
     Indication: ASTHMA
     Dosage: 400/12 MCG WITH UNKNOWN FREQUENCY
     Route: 055

REACTIONS (3)
  - Haemoptysis [Unknown]
  - Atrial fibrillation [Unknown]
  - Mitral valve stenosis [Unknown]
